FAERS Safety Report 14278848 (Version 1)
Quarter: 2017Q4

REPORT INFORMATION
  Report Type: Spontaneous
  Country: US (occurrence: US)
  Receive Date: 20171212
  Receipt Date: 20171212
  Transmission Date: 20180321
  Serious: No
  Sender: FDA-Public Use
  Company Number: US-XTTRIUM LABORATORIES, INC-2037070

PATIENT

DRUGS (1)
  1. SCRUB CARE EXIDINE -4 CHG [Suspect]
     Active Substance: CHLORHEXIDINE GLUCONATE
     Indication: ANTI-INFECTIVE THERAPY
     Route: 061

REACTIONS (1)
  - Electric shock [Unknown]

NARRATIVE: CASE EVENT DATE: 20170626
